FAERS Safety Report 24837949 (Version 2)
Quarter: 2025Q1

REPORT INFORMATION
  Report Type: Spontaneous
  Country: US (occurrence: US)
  Receive Date: 20250113
  Receipt Date: 20250312
  Transmission Date: 20250409
  Serious: No
  Sender: DR REDDYS
  Company Number: US-DRL-USA-USA/2025/01/000336

PATIENT
  Sex: Male

DRUGS (1)
  1. CLONIDINE [Suspect]
     Active Substance: CLONIDINE
     Indication: Hypertension
     Dosage: SINGLE PATCH,
     Route: 062
     Dates: start: 20250101, end: 20250105

REACTIONS (2)
  - Drug ineffective [Unknown]
  - Blood pressure abnormal [Unknown]
